FAERS Safety Report 8357211-2 (Version None)
Quarter: 2012Q2

REPORT INFORMATION
  Report Type: 
  Country: None (occurrence: None)
  Receive Date: 20120514
  Receipt Date: 20120501
  Transmission Date: 20120825
  Serious: Yes (Other)
  Sender: FDA-Public Use
  Company Number: GB-ELI_LILLY_AND_COMPANY-GB201205000968

PATIENT
  Age: 42 Year
  Sex: Male

DRUGS (3)
  1. CYMBALTA [Suspect]
     Indication: DEPRESSION
     Dosage: UNK
     Dates: start: 20111201
  2. CYMBALTA [Suspect]
     Dosage: 60 MG, UNKNOWN
  3. CYMBALTA [Suspect]
     Dosage: 30 MG, UNKNOWN
     Dates: start: 20120201

REACTIONS (2)
  - CATARACT [None]
  - VISION BLURRED [None]
